FAERS Safety Report 6034520-3 (Version None)
Quarter: 2009Q1

REPORT INFORMATION
  Report Type: 
  Country: None (occurrence: None)
  Receive Date: 20090108
  Receipt Date: 20090108
  Transmission Date: 20090719
  Serious: Yes (Life-Threatening, Hospitalization)
  Sender: FDA-Public Use
  Company Number: None

PATIENT
  Sex: Male
  Weight: 43.0917 kg

DRUGS (1)
  1. REMICADE [Suspect]
     Indication: TAKAYASU'S ARTERITIS
     Dosage: 500MG  IV  3 DOSE OVERALL
     Route: 042
     Dates: start: 20081009, end: 20081209

REACTIONS (3)
  - BRAIN ABSCESS [None]
  - DEPRESSED LEVEL OF CONSCIOUSNESS [None]
  - NOCARDIOSIS [None]
